FAERS Safety Report 17033558 (Version 1)
Quarter: 2019Q4

REPORT INFORMATION
  Report Type: Spontaneous
  Country: US (occurrence: US)
  Receive Date: 20191014
  Receipt Date: 20191014
  Transmission Date: 20200122
  Serious: No
  Sender: FDA-Public Use
  Company Number: None

PATIENT
  Age: 85 Year
  Sex: Male

DRUGS (1)
  1. REVLIMID [Suspect]
     Active Substance: LENALIDOMIDE
     Indication: PLASMA CELL MYELOMA
     Route: 048
     Dates: start: 20170419, end: 20191014

REACTIONS (5)
  - Hypoaesthesia [None]
  - Vitamin B12 deficiency [None]
  - Epicondylitis [None]
  - Paraesthesia [None]
  - Neuropathy peripheral [None]

NARRATIVE: CASE EVENT DATE: 20190923
